FAERS Safety Report 8908203 (Version 1)
Quarter: 2012Q4

REPORT INFORMATION
  Report Type: 
  Country: US (occurrence: US)
  Receive Date: 20121114
  Receipt Date: 20121114
  Transmission Date: 20130627
  Serious: Yes (Disabling)
  Sender: FDA-Public Use
  Company Number: US-PERRIGO-12US009557

PATIENT
  Age: 56 Year
  Sex: Male

DRUGS (4)
  1. CLINDAMYCIN PALMITATE HYDROCHLORIDE [Suspect]
     Indication: CELLULITIS PHARYNGEAL
     Dosage: 300 mg, qid
     Route: 048
  2. LEVOTHYROXINE [Concomitant]
     Indication: THYROIDECTOMY
     Dosage: 0.125 mg, Unknown
     Route: 048
  3. TRAZODONE [Concomitant]
     Indication: PRODUCT USED FOR UNKNOWN INDICATION
     Dosage: 50 mg, Unknown
     Route: 048
  4. DESVENLAFAXINE [Concomitant]
     Indication: PRODUCT USED FOR UNKNOWN INDICATION
     Dosage: 50 mg, qd
     Route: 065

REACTIONS (8)
  - Ageusia [Recovering/Resolving]
  - Dysgeusia [Recovered/Resolved]
  - Burning mouth syndrome [Recovered/Resolved]
  - Glossodynia [Recovered/Resolved]
  - Dry mouth [Recovered/Resolved]
  - Weight decreased [Unknown]
  - Food intolerance [Recovering/Resolving]
  - Insomnia [Unknown]
